FAERS Safety Report 6014410-2 (Version None)
Quarter: 2008Q4

REPORT INFORMATION
  Report Type: 
  Country: None (occurrence: None)
  Receive Date: 20081219
  Receipt Date: 20080605
  Transmission Date: 20090506
  Serious: No
  Sender: FDA-Public Use
  Company Number: A0731502A

PATIENT
  Age: 75 Year
  Sex: Male

DRUGS (14)
  1. AVODART [Suspect]
     Indication: BENIGN PROSTATIC HYPERPLASIA
     Dosage: .5MG PER DAY
     Route: 048
     Dates: start: 20080501
  2. FISH OIL [Concomitant]
  3. ASPIRIN [Concomitant]
  4. ALPHA LIPOIC ACID [Concomitant]
  5. ACETYLCARNITINE [Concomitant]
  6. MULTI-VITAMIN [Concomitant]
  7. ZOCOR [Concomitant]
  8. FLOMAX [Concomitant]
  9. TOPROL-XL [Concomitant]
  10. COZAAR [Concomitant]
  11. NORVASC [Concomitant]
  12. COSOPT [Concomitant]
  13. TRAVATAN [Concomitant]
  14. ALPHAGAN [Concomitant]

REACTIONS (1)
  - HEADACHE [None]
